FAERS Safety Report 4694543-3 (Version None)
Quarter: 2005Q2

REPORT INFORMATION
  Report Type: 
  Country: None (occurrence: None)
  Receive Date: 20050620
  Receipt Date: 20050309
  Transmission Date: 20051028
  Serious: Yes (Other)
  Sender: FDA-Public Use
  Company Number: US-MERCK-0503USA01948

PATIENT
  Sex: Female
  Weight: 86 kg

DRUGS (8)
  1. VIOXX [Suspect]
     Indication: OSTEOARTHRITIS
     Route: 048
     Dates: start: 20000922, end: 20010318
  2. VIOXX [Suspect]
     Route: 048
     Dates: start: 20010815, end: 20040901
  3. NORVASC [Concomitant]
     Indication: HYPERTENSION
     Route: 065
     Dates: start: 19930101
  4. ACETAMINOPHEN AND PROPOXYPHENE NAPSYLATE [Concomitant]
     Route: 065
  5. PREDNISONE [Concomitant]
     Route: 065
  6. LORAZEPAM [Concomitant]
     Route: 065
  7. HYDROCHLOROTHIAZIDE [Concomitant]
     Route: 065
  8. DICYCLOMINE HYDROCHLORIDE [Concomitant]
     Route: 065

REACTIONS (6)
  - ANGLE CLOSURE GLAUCOMA [None]
  - BACK PAIN [None]
  - CEREBROVASCULAR ACCIDENT [None]
  - PAIN IN EXTREMITY [None]
  - POLYMYALGIA RHEUMATICA [None]
  - TRANSIENT ISCHAEMIC ATTACK [None]
